FAERS Safety Report 14657181 (Version 3)
Quarter: 2018Q4

REPORT INFORMATION
  Report Type: Report from Study
  Country: None (occurrence: US)
  Receive Date: 20180319
  Receipt Date: 20181114
  Transmission Date: 20190204
  Serious: Yes (Death, Hospitalization, Other)
  Sender: FDA-Public Use
  Company Number: US-ABBVIE-18P-163-2292426-00

PATIENT
  Age: 48 Year
  Sex: Male

DRUGS (27)
  1. IFOSFAMIDE. [Concomitant]
     Active Substance: IFOSFAMIDE
     Indication: PRODUCT USED FOR UNKNOWN INDICATION
     Dates: start: 20180301
  2. MESNA. [Concomitant]
     Active Substance: MESNA
     Route: 042
     Dates: start: 20180302
  3. ETOPOSIDE. [Concomitant]
     Active Substance: ETOPOSIDE
     Route: 042
     Dates: start: 20180301
  4. ETOPOSIDE. [Concomitant]
     Active Substance: ETOPOSIDE
     Route: 042
     Dates: start: 20180302
  5. BACTRIM DS(SULFAMETHOXAZOLE, TRIMETHOPRIM)(TABLET) [Concomitant]
     Indication: PROPHYLAXIS
     Dosage: EVERY MONDAY, WEDNESDAY AND FRIDAY
     Route: 048
     Dates: start: 201708
  6. LOPRESSOR [Concomitant]
     Active Substance: METOPROLOL TARTRATE
     Indication: PRODUCT USED FOR UNKNOWN INDICATION
     Route: 048
     Dates: start: 20180307
  7. HUMALOG [Concomitant]
     Active Substance: INSULIN LISPRO
     Indication: PRODUCT USED FOR UNKNOWN INDICATION
     Dosage: WITH MEAL AT BEDTIME, RAPID ACTING
     Route: 058
     Dates: start: 20180307
  8. BACTRIM DS(SULFAMETHOXAZOLE, TRIMETHOPRIM)(TABLET) [Concomitant]
     Dosage: EVERY MONDAY, WEDNESDAY AND FRIDAY
     Route: 048
     Dates: start: 20180226
  9. FERROUS SULFATE. [Concomitant]
     Active Substance: FERROUS SULFATE
     Indication: PRODUCT USED FOR UNKNOWN INDICATION
     Route: 048
     Dates: start: 201801
  10. SENOKOT [Concomitant]
     Active Substance: SENNOSIDES
     Indication: PRODUCT USED FOR UNKNOWN INDICATION
     Route: 048
     Dates: start: 20180306
  11. SEROQUEL [Concomitant]
     Active Substance: QUETIAPINE FUMARATE
     Indication: PRODUCT USED FOR UNKNOWN INDICATION
     Dosage: AT BEDTIME
     Route: 048
     Dates: start: 20180313
  12. FENTANYL. [Concomitant]
     Active Substance: FENTANYL
     Indication: PRODUCT USED FOR UNKNOWN INDICATION
     Dosage: 25 MCG/H CONTINUOUS
     Route: 042
     Dates: start: 20180311
  13. PROTONIX [Concomitant]
     Active Substance: PANTOPRAZOLE SODIUM
     Indication: PRODUCT USED FOR UNKNOWN INDICATION
     Route: 048
     Dates: start: 20180307
  14. FENTANYL. [Concomitant]
     Active Substance: FENTANYL
     Dosage: 20 MCG/H IN NACL 0,9%  100 ML
     Route: 042
     Dates: start: 20180311
  15. ALLOPURINOL. [Concomitant]
     Active Substance: ALLOPURINOL
     Indication: PROPHYLAXIS
     Route: 048
     Dates: start: 20180214
  16. LOVENOX(ENOXAPARIN SODIUM) [Concomitant]
     Indication: PRODUCT USED FOR UNKNOWN INDICATION
     Dates: start: 201801
  17. PREDNISOLONE. [Concomitant]
     Active Substance: PREDNISOLONE
     Indication: LYMPHOMA
     Route: 048
     Dates: start: 20180214, end: 20180218
  18. MESNA. [Concomitant]
     Active Substance: MESNA
     Indication: PRODUCT USED FOR UNKNOWN INDICATION
     Route: 065
     Dates: start: 20180301
  19. CARBOPLATIN. [Concomitant]
     Active Substance: CARBOPLATIN
     Indication: PRODUCT USED FOR UNKNOWN INDICATION
     Route: 042
     Dates: start: 201803
  20. ETOPOSIDE. [Concomitant]
     Active Substance: ETOPOSIDE
     Indication: PRODUCT USED FOR UNKNOWN INDICATION
     Route: 042
     Dates: start: 20180226
  21. VENETOCLAX. [Suspect]
     Active Substance: VENETOCLAX
     Indication: PRODUCT USED FOR UNKNOWN INDICATION
     Dosage: LAST DOSE ON 02 MAR 2018
     Route: 048
     Dates: start: 20180228
  22. METHYLENE BLUE. [Concomitant]
     Active Substance: METHYLENE BLUE
     Indication: PRODUCT USED FOR UNKNOWN INDICATION
     Route: 042
  23. RITUXIMAB. [Concomitant]
     Active Substance: RITUXIMAB
     Indication: PRODUCT USED FOR UNKNOWN INDICATION
     Route: 042
     Dates: start: 20180228
  24. SENNA S(DOCUSATE SODIUM, SENNA) [Concomitant]
     Indication: CONSTIPATION
     Route: 048
     Dates: start: 201709
  25. ZOVIRAX(ACICLOVIR) [Concomitant]
     Indication: PRODUCT USED FOR UNKNOWN INDICATION
     Route: 048
     Dates: start: 201708
  26. ZOVIRAX(ACICLOVIR) [Concomitant]
     Route: 048
     Dates: start: 20170224
  27. TRAMADOL. [Concomitant]
     Active Substance: TRAMADOL
     Indication: PAIN
     Dosage: 50-100 MG
     Route: 048
     Dates: start: 20180221

REACTIONS (9)
  - Atrial fibrillation [Unknown]
  - Clostridium test positive [Unknown]
  - Neutropenia [Unknown]
  - Nephropathy toxic [Unknown]
  - Tachycardia [Unknown]
  - Confusional state [Unknown]
  - Death [Fatal]
  - Mental status changes [Recovering/Resolving]
  - Acute kidney injury [Unknown]

NARRATIVE: CASE EVENT DATE: 20180302
